FAERS Safety Report 15731598 (Version 4)
Quarter: 2019Q4

REPORT INFORMATION
  Report Type: Report from Study
  Country: DE (occurrence: DE)
  Receive Date: 20181217
  Receipt Date: 20191219
  Transmission Date: 20200122
  Serious: Yes (Hospitalization)
  Sender: FDA-Public Use
  Company Number: DE-SA-2017SA246302

PATIENT
  Age: 36 Year
  Sex: Female
  Weight: 103 kg

DRUGS (13)
  1. METHYLPREDNISOLONE. [Concomitant]
     Active Substance: METHYLPREDNISOLONE
     Indication: MULTIPLE SCLEROSIS RELAPSE
     Dosage: 1 G, QD
     Route: 042
     Dates: start: 20171120, end: 20171124
  2. FENISTIL [Concomitant]
     Active Substance: DIMETHINDENE
     Dosage: 4 ML, QD
     Route: 042
     Dates: start: 20171120, end: 20171124
  3. PARACETAMOL [Concomitant]
     Active Substance: ACETAMINOPHEN
     Dosage: 500 MG, QD
     Route: 048
     Dates: start: 20171120, end: 20171124
  4. LYRICA [Concomitant]
     Active Substance: PREGABALIN
     Dosage: 175 MG, QD
     Route: 048
     Dates: start: 20130101
  5. PANTOPRAZOLE SODIUM SESQUIHYDRATE [Concomitant]
     Active Substance: PANTOPRAZOLE SODIUM
     Dosage: 40 UNK
     Route: 048
     Dates: start: 20180702, end: 20180706
  6. OXYBUTYNIN. [Concomitant]
     Active Substance: OXYBUTYNIN CHLORIDE
     Dosage: 5 MG, 4X
     Route: 048
     Dates: start: 20120101
  7. FAMPYRA [Concomitant]
     Active Substance: DALFAMPRIDINE
     Dosage: 10 MG, BID
     Route: 048
     Dates: start: 20130601
  8. CLEXANE [Concomitant]
     Active Substance: ENOXAPARIN SODIUM
     Dosage: 0.4 ML, QD
     Route: 058
     Dates: start: 20171120, end: 20171123
  9. METHYLPREDNISOLONE. [Concomitant]
     Active Substance: METHYLPREDNISOLONE
     Dosage: 1 UNK
     Route: 042
     Dates: start: 20180702, end: 20180706
  10. ACICLOVIR [Concomitant]
     Active Substance: ACYCLOVIR
     Dosage: 200 MG, BID
     Route: 048
     Dates: start: 20171120, end: 20171204
  11. ALEMTUZUMAB [Suspect]
     Active Substance: ALEMTUZUMAB
     Indication: RELAPSING MULTIPLE SCLEROSIS
     Dosage: 12 MG,QD
     Route: 041
     Dates: start: 20171120, end: 20171124
  12. PANTOPRAZOLE SODIUM SESQUIHYDRATE [Concomitant]
     Active Substance: PANTOPRAZOLE SODIUM
     Indication: PROPHYLAXIS
     Dosage: 40 MG, QD
     Route: 048
     Dates: start: 20171120, end: 20171124
  13. ALEMTUZUMAB [Suspect]
     Active Substance: ALEMTUZUMAB
     Dosage: 12 MG, QD
     Route: 041
     Dates: start: 20181126, end: 20181128

REACTIONS (13)
  - Urosepsis [Recovered/Resolved]
  - Headache [Recovered/Resolved]
  - Fatigue [Not Recovered/Not Resolved]
  - Bradycardia [Recovered/Resolved]
  - Urinary tract infection [Recovered/Resolved]
  - Lymphopenia [Recovered/Resolved]
  - Urinary tract infection [Recovered/Resolved]
  - Body temperature increased [Recovered/Resolved]
  - Multiple sclerosis relapse [Not Recovered/Not Resolved]
  - Paraesthesia oral [Recovered/Resolved]
  - Dermatitis contact [Recovered/Resolved]
  - Varicella [Recovered/Resolved]
  - Fatigue [Recovered/Resolved]

NARRATIVE: CASE EVENT DATE: 20171120
